FAERS Safety Report 5063458-3 (Version None)
Quarter: 2006Q3

REPORT INFORMATION
  Report Type: 
  Country: None (occurrence: None)
  Receive Date: 20060727
  Receipt Date: 20060725
  Transmission Date: 20061208
  Serious: Yes (Other)
  Sender: FDA-Public Use
  Company Number: US-GLAXOSMITHKLINE-A0613504A

PATIENT
  Age: 43 Year

DRUGS (4)
  1. ESKALITH [Suspect]
     Route: 048
     Dates: start: 19940101
  2. ALEVE (CAPLET) [Suspect]
  3. LITHOBID [Suspect]
  4. ANXIOLYTIC [Concomitant]

REACTIONS (2)
  - CONVULSION [None]
  - SKIN DISCOLOURATION [None]
